FAERS Safety Report 5078368-5 (Version None)
Quarter: 2006Q3

REPORT INFORMATION
  Report Type: 
  Country: None (occurrence: None)
  Receive Date: 20060811
  Receipt Date: 20060515
  Transmission Date: 20061208
  Serious: Yes (Hospitalization)
  Sender: FDA-Public Use
  Company Number: JP-GLAXOSMITHKLINE-B0424863A

PATIENT
  Age: 14 Year
  Sex: Male
  Weight: 51 kg

DRUGS (1)
  1. ALBUTEROL SPIROS [Suspect]
     Dosage: 100MCG TWICE PER DAY
     Route: 055
     Dates: start: 20000101, end: 20031120

REACTIONS (11)
  - BLOOD GLUCOSE INCREASED [None]
  - BLOOD POTASSIUM DECREASED [None]
  - CHEST DISCOMFORT [None]
  - ELECTROCARDIOGRAM QT PROLONGED [None]
  - HYPOKALAEMIA [None]
  - NEUTROPHIL PERCENTAGE INCREASED [None]
  - OVERDOSE [None]
  - PALLOR [None]
  - TACHYCARDIA [None]
  - TREMOR [None]
  - WHITE BLOOD CELL COUNT INCREASED [None]
